FAERS Safety Report 5426902-5 (Version None)
Quarter: 2007Q3

REPORT INFORMATION
  Report Type: 
  Country: None (occurrence: None)
  Receive Date: 20070827
  Receipt Date: 20070815
  Transmission Date: 20080115
  Serious: Yes (Other)
  Sender: FDA-Public Use
  Company Number: US-PFIZER INC-2007068911

PATIENT
  Sex: Female

DRUGS (2)
  1. NEURONTIN [Suspect]
     Indication: LIMB DISCOMFORT
     Dates: start: 20001229, end: 20010121
  2. ANTINEOPLASTIC AGENTS [Suspect]

REACTIONS (2)
  - CARDIOVERSION [None]
  - SWELLING [None]
